FAERS Safety Report 25637136 (Version 2)
Quarter: 2025Q4

REPORT INFORMATION
  Report Type: Report from Study
  Country: EG (occurrence: EG)
  Receive Date: 20250804
  Receipt Date: 20251224
  Transmission Date: 20260118
  Serious: Yes (Hospitalization, Other)
  Sender: ROCHE
  Company Number: EG-ROCHE-10000351146

PATIENT
  Age: 73 Year
  Sex: Male
  Weight: 98 kg

DRUGS (9)
  1. TECENTRIQ [Suspect]
     Active Substance: ATEZOLIZUMAB
     Indication: Hepatocellular carcinoma
     Route: 042
     Dates: start: 20250204
  2. VALSARTAN [Concomitant]
     Active Substance: VALSARTAN
     Indication: Hypertension
     Route: 048
  3. CARVEDILOL [Concomitant]
     Active Substance: CARVEDILOL
     Indication: Hypertension
     Dosage: THE PATIENT TAKES TWO TABLETS DAILY
     Route: 048
  4. APIDRA [Concomitant]
     Active Substance: INSULIN GLULISINE
     Indication: Diabetes mellitus
     Dosage: THE NUMBER OF UNITS IS DETERMINED BASED ON BLOOD GLUCOSE LEVEL MEASUREMENTS.
  5. CARE DIPINE [Concomitant]
     Dosage: THE PATIENT TAKES TWO TABLETS DAILY.
     Route: 048
  6. TOUJEO [Concomitant]
     Active Substance: INSULIN GLARGINE
     Indication: Diabetes mellitus
     Dosage: THE PATIENT TAKES 30 UNITS IN THE EVENING
  7. URSOPLUS [Concomitant]
     Indication: Cholestasis
  8. EPICOPRED [Concomitant]
     Indication: Product used for unknown indication
     Dosage: THE PATIENT TAKES ONE TABLET IN THE MORNING AFTER BREAKFAST
     Route: 048
  9. AVASTIN [Concomitant]
     Active Substance: BEVACIZUMAB
     Indication: Hepatic cancer
     Route: 042

REACTIONS (7)
  - Localised oedema [Recovered/Resolved]
  - Hepatic enzyme increased [Recovering/Resolving]
  - Blood urea increased [Not Recovered/Not Resolved]
  - Hepatic neoplasm [Not Recovered/Not Resolved]
  - Drug ineffective [Unknown]
  - Renal impairment [Unknown]
  - Varicose vein [Unknown]

NARRATIVE: CASE EVENT DATE: 20250716
